FAERS Safety Report 5327591-0 (Version None)
Quarter: 2007Q2

REPORT INFORMATION
  Report Type: 
  Country: None (occurrence: None)
  Receive Date: 20070517
  Receipt Date: 20070122
  Transmission Date: 20071010
  Serious: Yes (Hospitalization, Other)
  Sender: FDA-Public Use
  Company Number: US-JNJFOC-20070103931

PATIENT
  Age: 87 Year
  Sex: Female

DRUGS (5)
  1. TRAMADOL HCL [Suspect]
     Indication: DRUG ADMINISTRATION ERROR
     Route: 065
  2. BETA BLOCKER [Suspect]
     Indication: DRUG ADMINISTRATION ERROR
     Route: 065
  3. ANTIPSYCHOTIC [Suspect]
     Indication: DRUG ADMINISTRATION ERROR
     Route: 065
  4. CLONIDINE [Suspect]
     Indication: DRUG ADMINISTRATION ERROR
     Route: 065
  5. ACE INHIBITOR [Concomitant]
     Route: 065

REACTIONS (3)
  - BRADYCARDIA [None]
  - DRUG ADMINISTRATION ERROR [None]
  - HYPOTENSION [None]
